FAERS Safety Report 5142863-0 (Version None)
Quarter: 2006Q4

REPORT INFORMATION
  Report Type: 
  Country: None (occurrence: None)
  Receive Date: 20061102
  Receipt Date: 20060720
  Transmission Date: 20070319
  Serious: Yes (Life-Threatening, Disabling)
  Sender: FDA-Public Use
  Company Number: DE-ABBOTT-06P-062-0338936-00

PATIENT
  Sex: Female
  Weight: 97 kg

DRUGS (3)
  1. REDUCTIL [Suspect]
     Indication: OBESITY
     Route: 048
     Dates: start: 20060101, end: 20060101
  2. IBUPROFEN [Concomitant]
     Indication: ARTHROPATHY
     Route: 048
  3. DICLOFENAC [Concomitant]
     Indication: ARTHROPATHY
     Route: 030

REACTIONS (4)
  - DEPRESSION [None]
  - HEADACHE [None]
  - NAUSEA [None]
  - UNEVALUABLE EVENT [None]
